FAERS Safety Report 6550767-1 (Version None)
Quarter: 2010Q1

REPORT INFORMATION
  Report Type: 
  Country: None (occurrence: None)
  Receive Date: 20100125
  Receipt Date: 20100118
  Transmission Date: 20100710
  Serious: Yes (Disabling)
  Sender: FDA-Public Use
  Company Number: PHHO2010GB01094

PATIENT
  Sex: Male

DRUGS (4)
  1. AFINITOR [Suspect]
     Indication: CARCINOID TUMOUR
     Dosage: 10 MG, UNK
     Route: 048
     Dates: start: 20091002, end: 20091202
  2. SANDOSTATIN LAR [Concomitant]
  3. OMEPRAZOLE [Concomitant]
  4. FELODIPINE [Concomitant]
     Indication: HYPERTENSION

REACTIONS (6)
  - AGEUSIA [None]
  - DIARRHOEA [None]
  - ECZEMA [None]
  - NAUSEA [None]
  - PAIN [None]
  - PRURITUS [None]
